FAERS Safety Report 24264201 (Version 1)
Quarter: 2024Q3

REPORT INFORMATION
  Report Type: Spontaneous
  Country: MX (occurrence: MX)
  Receive Date: 20240829
  Receipt Date: 20240829
  Transmission Date: 20241016
  Serious: Yes (Other)
  Sender: MERCK
  Company Number: MX-009507513-2408MEX008768

PATIENT
  Sex: Male

DRUGS (2)
  1. PEMBROLIZUMAB [Suspect]
     Active Substance: PEMBROLIZUMAB
     Indication: Renal cancer metastatic
     Dosage: UNK
     Dates: start: 2021, end: 202309
  2. AXITINIB [Suspect]
     Active Substance: AXITINIB
     Indication: Renal cancer metastatic
     Dosage: UNK
     Dates: start: 2021, end: 202309

REACTIONS (1)
  - Thrombocytopenia [Unknown]

NARRATIVE: CASE EVENT DATE: 20240814
